FAERS Safety Report 7050150-9 (Version None)
Quarter: 2010Q4

REPORT INFORMATION
  Report Type: 
  Country: None (occurrence: None)
  Receive Date: 20101018
  Receipt Date: 20101013
  Transmission Date: 20110411
  Serious: Yes (Other)
  Sender: FDA-Public Use
  Company Number: CL-PFIZER INC-2010111870

PATIENT
  Age: 40 Year
  Sex: Female

DRUGS (2)
  1. ECALTA [Suspect]
     Indication: CANDIDIASIS
     Dosage: 200 MG, 1X/DAY
     Dates: start: 20100801, end: 20100801
  2. ECALTA [Suspect]
     Dosage: 100 MG, 1X/DAY
     Dates: start: 20100801, end: 20100101

REACTIONS (5)
  - ANAPHYLACTIC REACTION [None]
  - ANGIOEDEMA [None]
  - DYSPNOEA [None]
  - HYPERSENSITIVITY [None]
  - HYPOTENSION [None]
